FAERS Safety Report 10678632 (Version 4)
Quarter: 2015Q4

REPORT INFORMATION
  Report Type: Spontaneous
  Country: US (occurrence: US)
  Receive Date: 20141229
  Receipt Date: 20151002
  Transmission Date: 20160304
  Serious: Yes (Hospitalization, Other)
  Sender: FDA-Public Use
  Company Number: US-BAYER-2014-189093

PATIENT
  Age: 31 Year
  Sex: Female
  Weight: 101 kg

DRUGS (2)
  1. PREDNISONE. [Concomitant]
     Active Substance: PREDNISONE
  2. MIRENA [Suspect]
     Active Substance: LEVONORGESTREL
     Indication: CONTRACEPTION
     Dosage: 20 MCG/24HR, CONT
     Route: 015
     Dates: start: 20101129, end: 20141016

REACTIONS (23)
  - Nausea [None]
  - Vomiting [None]
  - Ocular discomfort [None]
  - Dizziness [None]
  - Visual impairment [None]
  - Injury [None]
  - Pupillary reflex impaired [None]
  - Musculoskeletal discomfort [None]
  - Motion sickness [None]
  - Device use error [None]
  - Cerebral cyst [None]
  - Gait disturbance [None]
  - Fatigue [None]
  - Papilloedema [None]
  - Pain [None]
  - Benign intracranial hypertension [None]
  - Retinal haemorrhage [None]
  - Blindness transient [None]
  - Head discomfort [None]
  - Neck pain [None]
  - Benign intracranial hypertension [None]
  - Headache [None]
  - Visual acuity reduced [None]

NARRATIVE: CASE EVENT DATE: 201211
